FAERS Safety Report 14887206 (Version 1)
Quarter: 2018Q2

REPORT INFORMATION
  Report Type: Spontaneous
  Country: US (occurrence: US)
  Receive Date: 20180513
  Receipt Date: 20180513
  Transmission Date: 20180711
  Serious: No
  Sender: FDA-Public Use
  Company Number: US-ASTRAZENECA-2018SE56919

PATIENT
  Age: 22891 Day
  Sex: Male
  Weight: 133.8 kg

DRUGS (5)
  1. DILTIAZEM. [Concomitant]
     Active Substance: DILTIAZEM
     Indication: ATRIAL FIBRILLATION
     Route: 048
  2. ADVAIR HFA [Concomitant]
     Active Substance: FLUTICASONE PROPIONATE\SALMETEROL XINAFOATE
     Indication: ASTHMA
     Dosage: TWO TIMES A DAY
     Route: 055
  3. SINGULAIR [Concomitant]
     Active Substance: MONTELUKAST SODIUM
     Indication: ASTHMA
     Dosage: DAILY
     Route: 048
  4. FASENRA [Suspect]
     Active Substance: BENRALIZUMAB
     Indication: WHEEZING
     Dosage: 30 MG, EVERY 4 WEEKS FOR FIRST 3 DOSES THEN EVERY 8 WEEKS
     Route: 058
     Dates: start: 20180328
  5. TRICOR GENERIC BRAND [Concomitant]
     Indication: BLOOD CHOLESTEROL ABNORMAL
     Dosage: DAILY
     Route: 048

REACTIONS (6)
  - Cough [Unknown]
  - Total lung capacity decreased [Unknown]
  - Wheezing [Unknown]
  - Off label use [Unknown]
  - Product use in unapproved indication [Unknown]
  - Bronchitis [Unknown]

NARRATIVE: CASE EVENT DATE: 20180407
